FAERS Safety Report 7651483-5 (Version None)
Quarter: 2011Q3

REPORT INFORMATION
  Report Type: 
  Country: None (occurrence: None)
  Receive Date: 20110802
  Receipt Date: 20110727
  Transmission Date: 20111222
  Serious: Yes (Hospitalization)
  Sender: FDA-Public Use
  Company Number: PHHO2010CA08284

PATIENT
  Sex: Female
  Weight: 55.7 kg

DRUGS (5)
  1. EVEROLIMUS [Suspect]
     Indication: HEART TRANSPLANT
     Dosage: 0.75 MG, BID
     Route: 048
     Dates: start: 20090319, end: 20090406
  2. EVEROLIMUS [Suspect]
     Dosage: 1 MG, BID
     Route: 048
     Dates: start: 20100212, end: 20100304
  3. EVEROLIMUS [Suspect]
     Dosage: 1 MG, BID
     Route: 048
     Dates: start: 20090415, end: 20090504
  4. EVEROLIMUS [Suspect]
     Dosage: 1.0 / 0.75 MG
     Route: 048
     Dates: start: 20090407, end: 20090414
  5. EVEROLIMUS [Suspect]
     Dosage: 1.5 / 1.0 MG
     Route: 048
     Dates: start: 20090505, end: 20100211

REACTIONS (3)
  - PERICARDITIS CONSTRICTIVE [None]
  - PERICARDIAL EFFUSION [None]
  - GENERALISED OEDEMA [None]
